FAERS Safety Report 22399303 (Version 2)
Quarter: 2023Q2

REPORT INFORMATION
  Report Type: Report from Study
  Country: US (occurrence: US)
  Receive Date: 20230602
  Receipt Date: 20230627
  Transmission Date: 20230722
  Serious: Yes (Hospitalization)
  Sender: FDA-Public Use
  Company Number: US-EXELIXIS-XL18423064289

PATIENT

DRUGS (3)
  1. CABOZANTINIB [Suspect]
     Active Substance: CABOZANTINIB
     Indication: Neuroendocrine tumour of the lung
     Dosage: 60 MG, 1-21 (21 DAY CYCLE)
     Route: 048
     Dates: start: 20230209, end: 20230504
  2. CABOZANTINIB [Suspect]
     Active Substance: CABOZANTINIB
     Indication: Metastases to central nervous system
  3. CABOZANTINIB [Suspect]
     Active Substance: CABOZANTINIB
     Indication: Metastases to liver

REACTIONS (4)
  - Sepsis [Unknown]
  - Hypoxia [Unknown]
  - Dyspnoea [Not Recovered/Not Resolved]
  - Abdominal pain [Not Recovered/Not Resolved]

NARRATIVE: CASE EVENT DATE: 20230523
